FAERS Safety Report 8223953-2 (Version None)
Quarter: 2012Q1

REPORT INFORMATION
  Report Type: 
  Country: None (occurrence: None)
  Receive Date: 20120321
  Receipt Date: 20120312
  Transmission Date: 20120608
  Serious: Yes (Life-Threatening, Hospitalization)
  Sender: FDA-Public Use
  Company Number: JP-JNJFOC-20111202003

PATIENT
  Sex: Male
  Weight: 74 kg

DRUGS (22)
  1. LASIX [Concomitant]
     Route: 048
  2. INSULIN [Concomitant]
     Route: 058
  3. CYCLOSPORINE [Concomitant]
     Indication: PSORIASIS
     Dates: start: 20110706, end: 20110805
  4. BROTIZOLAM [Concomitant]
     Route: 048
  5. USTEKINUMAB [Suspect]
     Route: 058
     Dates: start: 20110803, end: 20110803
  6. KERATINAMIN [Concomitant]
     Indication: PSORIASIS
     Route: 061
  7. PREDNISOLONE [Suspect]
     Indication: PRODUCT USED FOR UNKNOWN INDICATION
     Route: 050
     Dates: start: 20111014, end: 20111027
  8. PREDNISOLONE [Suspect]
     Route: 048
     Dates: start: 20111028, end: 20111228
  9. HUMULIN INSULIN [Concomitant]
     Route: 058
  10. ALLEGRA [Concomitant]
     Indication: PSORIASIS
     Route: 048
  11. MICARDIS [Concomitant]
     Route: 048
  12. REBAMIPIDE [Concomitant]
     Route: 048
  13. HEPARIN [Concomitant]
     Indication: PSORIASIS
     Route: 061
  14. LEVEMIR [Concomitant]
     Route: 058
  15. NEUROTROPIN [Concomitant]
     Route: 048
  16. LIDOMEX [Concomitant]
     Indication: PSORIASIS
     Route: 061
  17. USTEKINUMAB [Suspect]
     Indication: PSORIASIS
     Route: 058
     Dates: start: 20110706, end: 20110706
  18. GLIMEPIRIDE [Concomitant]
     Route: 048
  19. SENNOSIDE [Concomitant]
     Route: 048
  20. MECOBALAMIN [Concomitant]
     Route: 048
  21. HYDROCORTISONE BUTYRATE [Concomitant]
     Indication: PSORIASIS
     Route: 061
  22. BETAMETHASONE BUTYRATE [Concomitant]
     Indication: PSORIASIS
     Route: 061

REACTIONS (3)
  - CELLULITIS [None]
  - GASTRIC ULCER [None]
  - EOSINOPHILIC PNEUMONIA [None]
